FAERS Safety Report 21263982 (Version 5)
Quarter: 2023Q1

REPORT INFORMATION
  Report Type: Spontaneous
  Country: JP (occurrence: JP)
  Receive Date: 20220829
  Receipt Date: 20230303
  Transmission Date: 20230418
  Serious: Yes (Hospitalization, Other)
  Sender: FDA-Public Use
  Company Number: JP-UCBJ-CD202208507UCBPHAPROD

PATIENT
  Age: 72 Year
  Sex: Female

DRUGS (8)
  1. CIMZIA [Suspect]
     Active Substance: CERTOLIZUMAB PEGOL
     Indication: Rheumatoid arthritis
     Dosage: UNK
     Route: 058
     Dates: start: 20191126
  2. CIMZIA [Suspect]
     Active Substance: CERTOLIZUMAB PEGOL
     Dosage: 200 MILLIGRAM
     Route: 058
     Dates: start: 20201102, end: 20210128
  3. CIMZIA [Suspect]
     Active Substance: CERTOLIZUMAB PEGOL
     Dosage: 200 MILLIGRAM
     Route: 058
     Dates: start: 20210614
  4. CIMZIA [Suspect]
     Active Substance: CERTOLIZUMAB PEGOL
     Dosage: 100 MILLIGRAM (ONCE IN 2 WEEKS)
     Dates: start: 20220325
  5. METHOTREXATE [Suspect]
     Active Substance: METHOTREXATE
     Indication: Rheumatoid arthritis
     Dosage: 6 MILLIGRAM, WEEKLY (QW)
     Dates: start: 20141011, end: 20210128
  6. METHOTREXATE [Suspect]
     Active Substance: METHOTREXATE
     Dosage: 8 MILLIGRAM, WEEKLY (QW)
     Route: 048
     Dates: start: 20141011, end: 20220206
  7. METHOTREXATE [Suspect]
     Active Substance: METHOTREXATE
     Dosage: 6 MILLIGRAM
     Dates: start: 20210411
  8. METHOTREXATE [Suspect]
     Active Substance: METHOTREXATE
     Dosage: 8 MILLIGRAM, WEEKLY (QW)
     Route: 048
     Dates: start: 20220419

REACTIONS (3)
  - Pneumonia [Unknown]
  - Coronavirus infection [Recovered/Resolved]
  - Underdose [Unknown]

NARRATIVE: CASE EVENT DATE: 20220206
